FAERS Safety Report 6428929-3 (Version None)
Quarter: 2009Q4

REPORT INFORMATION
  Report Type: 
  Country: None (occurrence: None)
  Receive Date: 20091102
  Receipt Date: 20091020
  Transmission Date: 20100525
  Serious: Yes (Other)
  Sender: FDA-Public Use
  Company Number: A-US2009-27494

PATIENT
  Age: 42 Year
  Sex: Male

DRUGS (2)
  1. TRACLEER [Suspect]
     Indication: PULMONARY ARTERIAL HYPERTENSION
     Dosage: ORAL
     Route: 048
     Dates: start: 20061012, end: 20090901
  2. REMODULIN (TREPROSTINIL) [Concomitant]

REACTIONS (6)
  - ASCITES [None]
  - ASPARTATE AMINOTRANSFERASE INCREASED [None]
  - BLOOD ALKALINE PHOSPHATASE INCREASED [None]
  - HYPERBILIRUBINAEMIA [None]
  - LIVER DISORDER [None]
  - PORTOPULMONARY HYPERTENSION [None]
